FAERS Safety Report 7026828-X (Version None)
Quarter: 2010Q4

REPORT INFORMATION
  Report Type: 
  Country: None (occurrence: None)
  Receive Date: 20101004
  Receipt Date: 20100824
  Transmission Date: 20110411
  Serious: No
  Sender: FDA-Public Use
  Company Number: US-BAYER-201020458BCC

PATIENT
  Age: 88 Year
  Sex: Female
  Weight: 47 kg

DRUGS (10)
  1. ALEVE (CAPLET) [Suspect]
     Indication: PRODUCT USED FOR UNKNOWN INDICATION
     Dosage: TOTAL DAILY DOSE: 220 MG  UNIT DOSE: 220 MG
     Route: 048
     Dates: start: 20100824
  2. ALEVE (CAPLET) [Suspect]
     Route: 048
  3. BENICAR [Concomitant]
     Dosage: IN THE MORNING
  4. DYSTOLIC [Concomitant]
  5. SINGULAIR [Concomitant]
  6. POTASSIUM [Concomitant]
  7. FLUID PILL [Concomitant]
  8. TYLENOL [Concomitant]
  9. CELEBREX [Concomitant]
  10. ADVIL LIQUI-GELS [Concomitant]

REACTIONS (4)
  - DIZZINESS [None]
  - DRUG INEFFECTIVE [None]
  - DYSGEUSIA [None]
  - THROAT IRRITATION [None]
